FAERS Safety Report 23355870 (Version 1)
Quarter: 2024Q1

REPORT INFORMATION
  Report Type: Spontaneous
  Country: CN (occurrence: CN)
  Receive Date: 20240102
  Receipt Date: 20240102
  Transmission Date: 20240410
  Serious: Yes (Other)
  Sender: FDA-Public Use
  Company Number: None

PATIENT
  Age: 58 Year
  Sex: Female
  Weight: 64 kg

DRUGS (4)
  1. CYCLOPHOSPHAMIDE [Suspect]
     Active Substance: CYCLOPHOSPHAMIDE
     Indication: Breast cancer female
     Dosage: 0.972 G (0.2G/BRANCH), ONE TIME IN ONE DAY, DILUTED WITH 500 ML (500 ML/BAG) OF 0.9% SODIUM CHLORIDE
     Route: 041
     Dates: start: 20231214, end: 20231214
  2. SODIUM CHLORIDE [Suspect]
     Active Substance: SODIUM CHLORIDE
     Indication: Medication dilution
     Dosage: 500 ML (500 ML/BAG), ONE TIME IN ONE DAY, STRENGTH: 0.9%, USED TO DILUTE 0.972 G OF CYCLOPHOSPHAMIDE
     Route: 041
     Dates: start: 20231214, end: 20231214
  3. SODIUM CHLORIDE [Suspect]
     Active Substance: SODIUM CHLORIDE
     Dosage: 50 ML (50 ML/BAG), ONE TIME IN ONE DAY, STRENGTH: 0.9%, USED TO DILUTE 80 MG (10 MG/BRANCH) OF EPIRU
     Route: 042
     Dates: start: 20231214, end: 20231214
  4. EPIRUBICIN HYDROCHLORIDE [Suspect]
     Active Substance: EPIRUBICIN HYDROCHLORIDE
     Indication: Breast cancer female
     Dosage: 80 MG (10 MG/BRANCH), ONE TIME IN ONE DAY, DILUTED WITH 50 ML (50 ML/BAG) OF 0.9% SODIUM CHLORIDE (V
     Route: 042
     Dates: start: 20231214, end: 20231214

REACTIONS (1)
  - Drug-induced liver injury [Recovering/Resolving]

NARRATIVE: CASE EVENT DATE: 20231214
